FAERS Safety Report 5910694-7 (Version None)
Quarter: 2008Q4

REPORT INFORMATION
  Report Type: 
  Country: None (occurrence: None)
  Receive Date: 20081007
  Receipt Date: 20080930
  Transmission Date: 20090506
  Serious: Yes (Hospitalization)
  Sender: FDA-Public Use
  Company Number: US-MERCK-0810USA00080

PATIENT
  Sex: Female

DRUGS (1)
  1. INVANZ [Suspect]
     Route: 042

REACTIONS (5)
  - ASTHENIA [None]
  - FALL [None]
  - HALLUCINATION [None]
  - HIP FRACTURE [None]
  - NIGHTMARE [None]
